FAERS Safety Report 5068510-4 (Version None)
Quarter: 2006Q3

REPORT INFORMATION
  Report Type: 
  Country: None (occurrence: None)
  Receive Date: 20060802
  Receipt Date: 20051031
  Transmission Date: 20061208
  Serious: No
  Sender: FDA-Public Use
  Company Number: US-BRISTOL-MYERS SQUIBB COMPANY-13162151

PATIENT
  Sex: Female

DRUGS (1)
  1. COUMADIN [Suspect]
     Dates: start: 19960101

REACTIONS (1)
  - CONSTIPATION [None]
